FAERS Safety Report 6475477-0 (Version None)
Quarter: 2009Q4

REPORT INFORMATION
  Report Type: 
  Country: None (occurrence: None)
  Receive Date: 20091204
  Receipt Date: 20091126
  Transmission Date: 20100525
  Serious: Yes (Hospitalization)
  Sender: FDA-Public Use
  Company Number: PHHY2009MX52524

PATIENT
  Age: 78 Year
  Sex: Female

DRUGS (1)
  1. ZELMAC [Suspect]
     Indication: IRRITABLE BOWEL SYNDROME
     Dosage: 2 DF (6 MG)/ DAY
     Route: 048
     Dates: start: 20091001, end: 20091126

REACTIONS (1)
  - SURGERY [None]
